FAERS Safety Report 5653623-6 (Version None)
Quarter: 2008Q1

REPORT INFORMATION
  Report Type: 
  Country: None (occurrence: None)
  Receive Date: 20080306
  Receipt Date: 20080225
  Transmission Date: 20080703
  Serious: Yes (Hospitalization)
  Sender: FDA-Public Use
  Company Number: CH-ROCHE-549985

PATIENT
  Age: 67 Year
  Sex: Female

DRUGS (7)
  1. CAPECITABINE [Suspect]
     Indication: PANCREATIC CARCINOMA
     Dosage: TEMPORARILY DISCONTINUED.
     Route: 065
     Dates: start: 20080221
  2. GEMCITABINE [Suspect]
     Indication: PANCREATIC CARCINOMA
     Route: 065
     Dates: start: 20080221
  3. OXALIPLATIN [Suspect]
     Indication: PANCREATIC CARCINOMA
     Route: 065
     Dates: start: 20080221
  4. MOTILIUM [Concomitant]
     Dates: start: 20080221
  5. TRAMAL [Concomitant]
     Dosage: ROUTE ILLEGIBLE.
     Dates: start: 20080206
  6. TRAMAL [Concomitant]
     Dosage: REPORTED AS TRAMALNOT.
     Dates: start: 20080206
  7. NOVOBAN [Concomitant]
     Dosage: ROUTE ILLEGIBLE.
     Dates: start: 20080221

REACTIONS (5)
  - DIARRHOEA [None]
  - FATIGUE [None]
  - GENERAL PHYSICAL HEALTH DETERIORATION [None]
  - NAUSEA [None]
  - PAIN IN EXTREMITY [None]
